FAERS Safety Report 4423784-5 (Version None)
Quarter: 2004Q3

REPORT INFORMATION
  Report Type: 
  Country: None (occurrence: None)
  Receive Date: 20040719
  Receipt Date: 20040503
  Transmission Date: 20050211
  Serious: No
  Sender: FDA-Public Use
  Company Number: A03200401382

PATIENT
  Sex: Male

DRUGS (4)
  1. UROXATRAL [Suspect]
     Indication: BENIGN PROSTATIC HYPERPLASIA
     Dosage: 10 MG OD; ORAL
     Route: 048
     Dates: start: 20040401
  2. NICOTINIC ACID [Concomitant]
  3. ATENOLOL [Concomitant]
  4. QUINAPRIL HYDROCHLORIDE [Concomitant]

REACTIONS (1)
  - HEART RATE INCREASED [None]
